FAERS Safety Report 8957374 (Version 2)
Quarter: 2012Q4

REPORT INFORMATION
  Report Type: Report from Study
  Country: CA (occurrence: CA)
  Receive Date: 20121210
  Receipt Date: 20121227
  Transmission Date: 20130627
  Serious: Yes (Other)
  Sender: FDA-Public Use
  Company Number: CA-ROCHE-1163385

PATIENT
  Age: 54 None
  Sex: Female
  Weight: 83 kg

DRUGS (14)
  1. TOCILIZUMAB [Suspect]
     Indication: RHEUMATOID ARTHRITIS
     Route: 042
     Dates: start: 20110218
  2. TOCILIZUMAB [Suspect]
     Route: 042
     Dates: start: 20110324
  3. TOCILIZUMAB [Suspect]
     Route: 042
     Dates: start: 20111103
  4. TOCILIZUMAB [Suspect]
     Route: 042
     Dates: start: 20121101
  5. NAPROSYN [Concomitant]
  6. PREMARIN [Concomitant]
  7. FOLIC ACID [Concomitant]
  8. VENTOLIN [Concomitant]
     Dosage: As required
     Route: 065
  9. FLOVENT [Concomitant]
     Dosage: As required
     Route: 065
  10. SYMBICORT [Concomitant]
     Dosage: As required
     Route: 065
  11. GRAVOL [Concomitant]
  12. METHOTREXATE [Concomitant]
     Indication: RHEUMATOID ARTHRITIS
     Route: 048
     Dates: start: 20090317
  13. AMITRIPTYLINE [Concomitant]
  14. RABEPRAZOLE [Concomitant]

REACTIONS (4)
  - Syncope [Recovering/Resolving]
  - Tachycardia [Recovering/Resolving]
  - Herpes zoster [Recovered/Resolved]
  - Pneumonia [Unknown]
